FAERS Safety Report 24705243 (Version 1)
Quarter: 2024Q4

REPORT INFORMATION
  Report Type: Spontaneous
  Country: NL (occurrence: NL)
  Receive Date: 20241206
  Receipt Date: 20241206
  Transmission Date: 20250115
  Serious: Yes (Other)
  Sender: ACCORD
  Company Number: None

PATIENT
  Age: 79 Year
  Sex: Male
  Weight: 84 kg

DRUGS (3)
  1. CISPLATIN [Suspect]
     Active Substance: CISPLATIN
     Indication: Malignant neoplasm papilla of Vater
     Dosage: 49MG
     Dates: start: 20241018
  2. GEMCITABINE [Suspect]
     Active Substance: GEMCITABINE
     Indication: Malignant neoplasm papilla of Vater
     Dosage: 1960MG
     Dates: start: 20241018
  3. FUROSEMIDE [Concomitant]
     Active Substance: FUROSEMIDE
     Dosage: SOLUTION FOR INFUSION, 1 MG/ML (MILLIGRAM PER MILLILITER)

REACTIONS (5)
  - Hypervolaemia [Recovered/Resolved]
  - Anaemia [Recovering/Resolving]
  - Dyspnoea [Recovered/Resolved]
  - Weight decreased [Recovered/Resolved]
  - Oedema [Recovered/Resolved]
